FAERS Safety Report 20529646 (Version 1)
Quarter: 2022Q1

REPORT INFORMATION
  Report Type: Spontaneous
  Country: DK (occurrence: DK)
  Receive Date: 20220301
  Receipt Date: 20220301
  Transmission Date: 20220424
  Serious: Yes (Life-Threatening, Disabling, Other)
  Sender: FDA-Public Use
  Company Number: DK-AMGEN-DNKSP2022031414

PATIENT
  Age: 38 Year
  Sex: Male

DRUGS (11)
  1. PEGFILGRASTIM [Suspect]
     Active Substance: PEGFILGRASTIM
     Indication: Prophylaxis
     Dosage: 6 MILLIGRAM, DAY 7 EVERY 3 WEEKS, 4 COURSES
     Route: 058
  2. DARATUMUMAB [Suspect]
     Active Substance: DARATUMUMAB
     Indication: Product used for unknown indication
     Dosage: 16 MILLIGRAM/KILOGRAM, D1 WEEKLY FOR 13 WEEKS
     Route: 042
  3. NELARABINE [Suspect]
     Active Substance: NELARABINE
     Indication: Product used for unknown indication
     Dosage: 1500 MILLIGRAM/SQ. METER, D1, 3, 5 EVERY 3 WEEKS, 4 COURSES
     Route: 065
  4. DEXAMETHASONE [Concomitant]
     Active Substance: DEXAMETHASONE
     Indication: Non-Hodgkin^s lymphoma
     Dosage: 40 MILLIGRAM, DAY 01 TO 4 EVERY 3 WEEKS, 4 COURSES
  5. DEXAMETHASONE [Concomitant]
     Active Substance: DEXAMETHASONE
     Indication: Neoplasm
  6. DAUNORUBICIN [Concomitant]
     Active Substance: DAUNORUBICIN
     Indication: Non-Hodgkin^s lymphoma
     Dosage: UNK
  7. DAUNORUBICIN [Concomitant]
     Active Substance: DAUNORUBICIN
     Indication: Neoplasm
  8. VINCRISTINE [Concomitant]
     Active Substance: VINCRISTINE
     Indication: Non-Hodgkin^s lymphoma
     Dosage: UNK
  9. VINCRISTINE [Concomitant]
     Active Substance: VINCRISTINE
     Indication: Neoplasm
  10. CYCLOPHOSPHAMIDE [Concomitant]
     Active Substance: CYCLOPHOSPHAMIDE
     Dosage: 120 MILLIGRAM/KILOGRAM
  11. PEG/L-ASPARAGINASE [Concomitant]
     Active Substance: PEGASPARGASE
     Dosage: 1000 MILLIGRAM/SQ. METER, D 1 EVERY 3 WEEKS, 4 COURSES
     Route: 030

REACTIONS (12)
  - Anal sphincter atony [Recovering/Resolving]
  - Ataxia [Recovering/Resolving]
  - Sensory loss [Recovering/Resolving]
  - Quadriparesis [Recovering/Resolving]
  - Metastases to pleura [Unknown]
  - Precursor T-lymphoblastic lymphoma/leukaemia recurrent [Unknown]
  - Chronic graft versus host disease [Unknown]
  - Febrile neutropenia [Unknown]
  - Brain stem syndrome [Unknown]
  - Bone marrow failure [Unknown]
  - Asthenia [Unknown]
  - Peripheral sensory neuropathy [Unknown]
